FAERS Safety Report 25546728 (Version 1)
Quarter: 2025Q3

REPORT INFORMATION
  Report Type: Spontaneous
  Country: BR (occurrence: BR)
  Receive Date: 20250714
  Receipt Date: 20250714
  Transmission Date: 20251021
  Serious: Yes (Other)
  Sender: CURRAX PHARMACEUTICALS
  Company Number: BR-CURRAX PHARMACEUTICALS LLC-BR-2025CUR001358

PATIENT
  Sex: Female

DRUGS (1)
  1. CONTRAVE [Suspect]
     Active Substance: BUPROPION HYDROCHLORIDE\NALTREXONE HYDROCHLORIDE
     Indication: Weight decreased
     Dosage: 98.0 MILLIGRAM(S) (98 MILLIGRAM(S), 1 IN 1 DAY)
     Route: 048
     Dates: start: 20250701, end: 20250704

REACTIONS (11)
  - Altered state of consciousness [Unknown]
  - Dyspnoea [Not Recovered/Not Resolved]
  - Chills [Not Recovered/Not Resolved]
  - Agitation [Unknown]
  - Dizziness [Unknown]
  - Tremor [Unknown]
  - Vertigo [Not Recovered/Not Resolved]
  - Dry mouth [Unknown]
  - Heart rate increased [Not Recovered/Not Resolved]
  - Nausea [Unknown]
  - Fatigue [Not Recovered/Not Resolved]

NARRATIVE: CASE EVENT DATE: 20250701
